FAERS Safety Report 7275106-2 (Version None)
Quarter: 2011Q1

REPORT INFORMATION
  Report Type: 
  Country: None (occurrence: None)
  Receive Date: 20110204
  Receipt Date: 20110124
  Transmission Date: 20110831
  Serious: Yes (Hospitalization)
  Sender: FDA-Public Use
  Company Number: PHHY2011DE07852

PATIENT
  Age: 13 Year
  Sex: Female

DRUGS (1)
  1. ZOMETA [Suspect]
     Indication: OSTEOPENIA
     Dosage: 4 MG, UNK
     Route: 042
     Dates: start: 20091008, end: 20101110

REACTIONS (3)
  - EPIPHYSEAL DISORDER [None]
  - OEDEMA PERIPHERAL [None]
  - BONE PAIN [None]
